FAERS Safety Report 10229228 (Version 2)
Quarter: 2015Q2

REPORT INFORMATION
  Report Type: Spontaneous
  Country: JP (occurrence: JP)
  Receive Date: 20140611
  Receipt Date: 20150513
  Transmission Date: 20150821
  Serious: Yes (Death, Other)
  Sender: FDA-Public Use
  Company Number: JP-BEH-2014043133

PATIENT
  Age: 71 Year
  Sex: Female

DRUGS (1)
  1. IMMUNOGLOBULIN [Suspect]
     Active Substance: HUMAN IMMUNOGLOBULIN G
     Indication: TOXIC EPIDERMAL NECROLYSIS

REACTIONS (2)
  - Drug ineffective for unapproved indication [Fatal]
  - Sepsis [Fatal]
